FAERS Safety Report 23583942 (Version 2)
Quarter: 2024Q1

REPORT INFORMATION
  Report Type: Spontaneous
  Country: US (occurrence: US)
  Receive Date: 20240301
  Receipt Date: 20240327
  Transmission Date: 20240410
  Serious: No
  Sender: FDA-Public Use
  Company Number: US-Blueprint Medicines Corporation-2532

PATIENT
  Sex: Male

DRUGS (2)
  1. AYVAKIT [Suspect]
     Active Substance: AVAPRITINIB
     Indication: Systemic mastocytosis
     Route: 048
     Dates: start: 20230706
  2. AYVAKIT [Suspect]
     Active Substance: AVAPRITINIB
     Indication: Indolent systemic mastocytosis
     Route: 048
     Dates: start: 20230703

REACTIONS (7)
  - Nonspecific reaction [Unknown]
  - Muscular weakness [Unknown]
  - Bradykinesia [Unknown]
  - Gait disturbance [Unknown]
  - Speech disorder [Unknown]
  - Fatigue [Unknown]
  - General symptom [Recovering/Resolving]
